FAERS Safety Report 8607799 (Version 3)
Quarter: 2014Q2

REPORT INFORMATION
  Report Type: Spontaneous
  Country: US (occurrence: US)
  Receive Date: 20120611
  Receipt Date: 20140401
  Transmission Date: 20141212
  Serious: Yes (Other)
  Sender: FDA-Public Use
  Company Number: US-ASTRAZENECA-2012SE35293

PATIENT
  Age: 54 Year
  Sex: Male
  Weight: 72.6 kg

DRUGS (13)
  1. NEXIUM [Suspect]
     Route: 048
  2. XANAX [Concomitant]
     Dates: start: 20060403
  3. METHADONE [Concomitant]
     Dates: start: 20060403
  4. IBUPROFEN [Concomitant]
     Dates: start: 20060403
  5. PHENERGAN [Concomitant]
     Dates: start: 20060403
  6. KEPPRA [Concomitant]
     Route: 048
     Dates: start: 20070718
  7. ALPRAZOLAM [Concomitant]
     Route: 048
     Dates: start: 20050930
  8. PROMETHAZINE [Concomitant]
     Route: 048
     Dates: start: 20060128
  9. CLONAZEPAM [Concomitant]
     Route: 048
     Dates: start: 20050930
  10. TOPAMAX [Concomitant]
     Dosage: AT BEDTIME AND THEN INCREASED BY ONE TABLET WEEKLY INTERVALS UNTILL TAKING TWO TABLETS BY MOUTH
     Route: 048
     Dates: start: 20060822
  11. LYRICA [Concomitant]
     Route: 048
     Dates: start: 20081120
  12. ALENDRONATE [Concomitant]
     Route: 048
     Dates: start: 20080422
  13. OMEPRAZOLE [Concomitant]
     Route: 048
     Dates: start: 20080325

REACTIONS (11)
  - Neoplasm malignant [Unknown]
  - Convulsion [Unknown]
  - Malignant melanoma [Unknown]
  - Optic glioma [Unknown]
  - Osteoporosis [Unknown]
  - Multiple fractures [Unknown]
  - Bone disorder [Unknown]
  - Arthritis [Unknown]
  - Vitamin D deficiency [Unknown]
  - Osteopenia [Unknown]
  - Activities of daily living impaired [Unknown]
